FAERS Safety Report 13342582 (Version 1)
Quarter: 2017Q1

REPORT INFORMATION
  Report Type: Report from Study
  Country: CA (occurrence: CA)
  Receive Date: 20170316
  Receipt Date: 20170316
  Transmission Date: 20170428
  Serious: Yes (Other)
  Sender: FDA-Public Use
  Company Number: CA-JNJFOC-20170315015

PATIENT
  Sex: Male
  Weight: 73 kg

DRUGS (4)
  1. ASA [Concomitant]
     Active Substance: ASPIRIN
     Route: 048
  2. COVERSYL [Concomitant]
     Active Substance: PERINDOPRIL
     Route: 048
  3. CRESTOR [Concomitant]
     Active Substance: ROSUVASTATIN CALCIUM
     Route: 048
  4. REMICADE [Suspect]
     Active Substance: INFLIXIMAB
     Indication: CROHN^S DISEASE
     Route: 042
     Dates: start: 20140213

REACTIONS (1)
  - Prostate cancer [Unknown]
